FAERS Safety Report 5047766-8 (Version None)
Quarter: 2006Q3

REPORT INFORMATION
  Report Type: 
  Country: None (occurrence: None)
  Receive Date: 20060711
  Receipt Date: 20060517
  Transmission Date: 20061208
  Serious: Yes (Hospitalization)
  Sender: FDA-Public Use
  Company Number: BE-AVENTIS-200612836EU

PATIENT
  Age: 29 Week
  Sex: Male
  Weight: 1.35 kg

DRUGS (4)
  1. LASIX [Suspect]
     Indication: OEDEMA
     Dosage: DOSE: 10MG/KG
     Route: 042
  2. DOBUTAMINE HCL [Concomitant]
     Indication: CARDIAC FAILURE
     Route: 042
     Dates: start: 20060513
  3. DOPAMINE [Concomitant]
     Indication: CARDIAC FAILURE
     Route: 042
     Dates: start: 20060513
  4. MORPHINE [Concomitant]
     Indication: SEDATION
     Route: 042
     Dates: start: 20060513

REACTIONS (9)
  - BLOOD CREATININE ABNORMAL [None]
  - BLOOD UREA ABNORMAL [None]
  - DEHYDRATION [None]
  - LEUKOPENIA [None]
  - NEONATAL RESPIRATORY DISTRESS SYNDROME [None]
  - OEDEMA [None]
  - OEDEMA NEONATAL [None]
  - POLYURIA [None]
  - WRONG TECHNIQUE IN DRUG USAGE PROCESS [None]
